FAERS Safety Report 5245940-9 (Version None)
Quarter: 2007Q1

REPORT INFORMATION
  Report Type: 
  Country: None (occurrence: None)
  Receive Date: 20070221
  Receipt Date: 20070204
  Transmission Date: 20070707
  Serious: Yes (Hospitalization)
  Sender: FDA-Public Use
  Company Number: 2007VX000410

PATIENT
  Age: 33 Year
  Sex: Male
  Weight: 106 kg

DRUGS (1)
  1. INTERFERON ALFACON-1 (INTERFERON ALFACON-1) [Suspect]
     Indication: HEPATITIS C
     Dosage: 18 UG;QD;SC
     Route: 058
     Dates: start: 20061025, end: 20061213

REACTIONS (8)
  - ANOREXIA [None]
  - BACTERIAL SEPSIS [None]
  - EMBOLISM [None]
  - MENINGOENCEPHALITIS BACTERIAL [None]
  - PARAESTHESIA [None]
  - PETECHIAE [None]
  - PNEUMONIA [None]
  - STAPHYLOCOCCAL INFECTION [None]
